FAERS Safety Report 14166622 (Version 2)
Quarter: 2017Q4

REPORT INFORMATION
  Report Type: Spontaneous
  Country: JP (occurrence: JP)
  Receive Date: 20171107
  Receipt Date: 20171128
  Transmission Date: 20180321
  Serious: Yes (Hospitalization)
  Sender: FDA-Public Use
  Company Number: JP-EISAI MEDICAL RESEARCH-EC-2017-032762

PATIENT
  Age: 69 Year
  Sex: Male

DRUGS (3)
  1. CLARITHROMYCIN. [Concomitant]
     Active Substance: CLARITHROMYCIN
     Indication: HELICOBACTER INFECTION
     Dosage: UNKNOWN
  2. AMOXICILLIN. [Concomitant]
     Active Substance: AMOXICILLIN
     Indication: HELICOBACTER INFECTION
     Dosage: UNKNOWN
  3. PARIET [Suspect]
     Active Substance: RABEPRAZOLE SODIUM
     Indication: HELICOBACTER INFECTION
     Dosage: UNKNOWN
     Route: 048

REACTIONS (1)
  - Rash [Recovered/Resolved]
